FAERS Safety Report 15991276 (Version 2)
Quarter: 2019Q1

REPORT INFORMATION
  Report Type: Spontaneous
  Country: AT (occurrence: AT)
  Receive Date: 20190221
  Receipt Date: 20190313
  Transmission Date: 20190418
  Serious: Yes (Death, Hospitalization, Other)
  Sender: FDA-Public Use
  Company Number: AT-MYLANLABS-2019M1015271

PATIENT
  Age: 80 Year
  Sex: Female

DRUGS (54)
  1. OMEPRAZOLE. [Interacting]
     Active Substance: OMEPRAZOLE
     Indication: GASTRITIS
     Dosage: 80 MILLIGRAM, QD
     Route: 065
  2. IBANDRONATE [Interacting]
     Active Substance: IBANDRONATE SODIUM
     Indication: PERIPHERAL VENOUS DISEASE
  3. DIOSMIN [Suspect]
     Active Substance: DIOSMIN
     Indication: PERIPHERAL VENOUS DISEASE
     Dosage: 450 MILLIGRAM, QD,AT PATIENTS INSISTENCE
     Route: 065
  4. SALMETEROL [Suspect]
     Active Substance: SALMETEROL
     Indication: CHRONIC OBSTRUCTIVE PULMONARY DISEASE
     Dosage: 4 DOSAGE FORM, QD,PUFFS
     Route: 055
  5. LEVODOPA [Suspect]
     Active Substance: LEVODOPA
     Indication: RESTLESS LEGS SYNDROME
     Dosage: 100 MILLIGRAM, QD
     Route: 065
  6. SPIRIVA [Suspect]
     Active Substance: TIOTROPIUM BROMIDE MONOHYDRATE
     Indication: CHRONIC OBSTRUCTIVE PULMONARY DISEASE
     Dosage: 18 MICROGRAM, QD,PUFF (1 DOSAGE)
     Route: 065
  7. BENSERAZIDE [Concomitant]
     Active Substance: BENSERAZIDE
     Indication: HYPOTHYROIDISM
     Dosage: UNK
     Route: 065
  8. CLOPIDOGREL [Interacting]
     Active Substance: CLOPIDOGREL BISULFATE
     Indication: CORONARY ARTERY DISEASE
     Dosage: 75 MILLIGRAM, QD
     Route: 065
  9. ATORVASTATIN [Interacting]
     Active Substance: ATORVASTATIN
     Indication: HYPERCHOLESTEROLAEMIA
     Dosage: 40 MILLIGRAM, QD (SUPERFLUOUS IN HINDSIGHT)
     Route: 065
  10. ACETAZOLAMIDE. [Interacting]
     Active Substance: ACETAZOLAMIDE
     Indication: HYPERCAPNIA
     Dosage: 50 MILLIGRAM, QD
     Route: 065
  11. SERTRALINE [Interacting]
     Active Substance: SERTRALINE HYDROCHLORIDE
     Indication: DEPRESSION
     Dosage: 50 MILLIGRAM, QD
     Route: 065
  12. FLUTICASONE. [Suspect]
     Active Substance: FLUTICASONE
     Dosage: 460 MICROGRAM, QD
     Route: 055
  13. METHYLPREDNISOLONE. [Suspect]
     Active Substance: METHYLPREDNISOLONE
     Indication: PRODUCT USED FOR UNKNOWN INDICATION
     Dosage: 64 MILLIGRAM, QD
     Route: 042
  14. PIPERACILIN/TAZOBACTAM [Concomitant]
     Active Substance: PIPERACILLIN SODIUM\TAZOBACTAM SODIUM
     Indication: PRODUCT USED FOR UNKNOWN INDICATION
     Dosage: UNK
     Route: 065
  15. ALPRAZOLAM. [Interacting]
     Active Substance: ALPRAZOLAM
     Indication: DYSPNOEA
     Dosage: UNK
     Route: 065
  16. LEVOTHYROXINE. [Interacting]
     Active Substance: LEVOTHYROXINE
     Indication: HYPERTHYROIDISM
     Dosage: 125 MILLIGRAM, QD
     Route: 065
  17. DICLOFENAC [Interacting]
     Active Substance: DICLOFENAC
     Indication: PAIN
     Dosage: UNK, PRN,MAX 2X1 AS NEEDED IN CASE OF PAIN
     Route: 065
  18. IBANDRONATE [Interacting]
     Active Substance: IBANDRONATE SODIUM
     Indication: OSTEOPOROSIS
     Dosage: 3 MILLIGRAM, Q3MONTHS,EVERY 3 MONTHS
     Route: 065
  19. THEOPHYLLINE [Interacting]
     Active Substance: THEOPHYLLINE ANHYDROUS
     Dosage: 200 MILLIGRAM, QD
     Route: 065
  20. FLUTICASONE. [Suspect]
     Active Substance: FLUTICASONE
     Indication: CHRONIC OBSTRUCTIVE PULMONARY DISEASE
     Dosage: 920 MICROGRAM, QD
     Route: 055
  21. OXYGEN. [Suspect]
     Active Substance: OXYGEN
     Indication: CHRONIC OBSTRUCTIVE PULMONARY DISEASE
     Dosage: UNK
  22. DULOXETINE. [Interacting]
     Active Substance: DULOXETINE
     Indication: PAIN
     Dosage: 120 MILLIGRAM, QD
     Route: 065
  23. TRAMADOL. [Interacting]
     Active Substance: TRAMADOL
     Indication: PAIN
     Dosage: 200 MILLIGRAM, QD
     Route: 065
  24. PREDNISONE. [Interacting]
     Active Substance: PREDNISONE
     Indication: CHRONIC OBSTRUCTIVE PULMONARY DISEASE
     Dosage: 25 MILLIGRAM, QD (UNTIL FOLLOW-UP)
     Route: 065
  25. ACETYLCYSTEINE. [Interacting]
     Active Substance: ACETYLCYSTEINE
     Indication: CHRONIC OBSTRUCTIVE PULMONARY DISEASE
     Dosage: 600 MILLIGRAM, QD
     Route: 065
  26. MORPHINE HYDROCHLORIDE [Concomitant]
     Active Substance: MORPHINE HYDROCHLORIDE
     Indication: PRODUCT USED FOR UNKNOWN INDICATION
     Dosage: UNK
     Route: 065
  27. HESPERIDIN [Concomitant]
     Active Substance: HESPERIDIN
     Indication: PERIPHERAL VENOUS DISEASE
     Dosage: 50 MILLIGRAM, QD,AT PATIENTS INSISTENCE
     Route: 065
  28. THEOPHYLLINE [Interacting]
     Active Substance: THEOPHYLLINE ANHYDROUS
     Indication: CHRONIC OBSTRUCTIVE PULMONARY DISEASE
     Dosage: 400 MILLIGRAM, QD
     Route: 065
  29. ACETAZOLAMIDE. [Interacting]
     Active Substance: ACETAZOLAMIDE
     Indication: ALKALOSIS
     Dosage: 250 MILLIGRAM, QW
     Route: 065
  30. HYDROMORPHONE [Suspect]
     Active Substance: HYDROMORPHONE
     Indication: PAIN
     Dosage: 4 MILLIGRAM, QD
     Route: 065
  31. LISALGIL [Suspect]
     Active Substance: METAMIZOLE SODIUM
     Dosage: 25 MILLIGRAM, QD
     Route: 042
  32. BENSERAZIDE [Concomitant]
     Active Substance: BENSERAZIDE
     Indication: RESTLESS LEGS SYNDROME
  33. DULOXETINE. [Interacting]
     Active Substance: DULOXETINE
     Dosage: 60 MILLIGRAM, QD
     Route: 065
  34. BISOPROLOL [Interacting]
     Active Substance: BISOPROLOL
     Indication: CORONARY ARTERY DISEASE
     Dosage: 5 MILLIGRAM, QD,IN TWO DIVIDED DOSES, PNE IN THE MORNING AND ONE AT NIGHT
     Route: 065
  35. GABAPENTIN. [Interacting]
     Active Substance: GABAPENTIN
     Indication: PAIN
     Dosage: 1200 MILLIGRAM, QD
     Route: 065
  36. GABAPENTIN. [Interacting]
     Active Substance: GABAPENTIN
     Dosage: 600 MILLIGRAM, QD
     Route: 065
  37. PREDNISONE. [Interacting]
     Active Substance: PREDNISONE
     Dosage: 5, UNK
     Route: 065
  38. LEVOTHYROXINE. [Interacting]
     Active Substance: LEVOTHYROXINE
     Dosage: 75 MICROGRAM, QD
     Route: 065
  39. LISALGIL [Suspect]
     Active Substance: METAMIZOLE SODIUM
     Indication: PRODUCT USED FOR UNKNOWN INDICATION
     Dosage: 50 MILLIGRAM, QD
     Route: 042
  40. SALMETEROL [Suspect]
     Active Substance: SALMETEROL
     Dosage: 2 DOSAGE FORM, QD PUFFS
     Route: 055
  41. FENOTEROL [Suspect]
     Active Substance: FENOTEROL
     Indication: CHRONIC OBSTRUCTIVE PULMONARY DISEASE
     Dosage: UNK, PRN, MAX 4X2 PUFFS AS NEEDED IN CASE OF DYSPNOEA
     Route: 055
  42. ALGELDRATE [Concomitant]
     Active Substance: ALGELDRATE
     Indication: GASTROOESOPHAGEAL REFLUX DISEASE
     Dosage: UNK, PRN,AS NEEDED, MAX 2X1
     Route: 065
  43. PRAMIPEXOLE. [Suspect]
     Active Substance: PRAMIPEXOLE
     Indication: RESTLESS LEGS SYNDROME
     Dosage: 2.1 MILLIGRAM, QD
     Route: 065
  44. ALPRAZOLAM. [Interacting]
     Active Substance: ALPRAZOLAM
     Indication: FEAR
     Dosage: 0.5 MILLIGRAM, QD
     Route: 065
  45. RISPERIDONE. [Interacting]
     Active Substance: RISPERIDONE
     Indication: PRODUCT USED FOR UNKNOWN INDICATION
     Dosage: 1 MILLIGRAM NOCTE (HALF DOSE AT NIGHT)
     Route: 065
  46. SERTRALINE [Interacting]
     Active Substance: SERTRALINE HYDROCHLORIDE
     Indication: PANIC ATTACK
  47. BENSERAZIDE [Suspect]
     Active Substance: BENSERAZIDE
     Indication: RESTLESS LEGS SYNDROME
     Dosage: 25 MILLIGRAM, QD
     Route: 065
  48. OXYGEN. [Suspect]
     Active Substance: OXYGEN
     Indication: HYPOXIA
     Dosage: UNK, 2L/MIN CONTINUOSLY
     Route: 065
  49. VITAMIN D                          /00107901/ [Suspect]
     Active Substance: ERGOCALCIFEROL
     Indication: VITAMIN D DEFICIENCY
     Dosage: 16000 INTERNATIONAL UNIT, QW,WEEKLY
     Route: 065
  50. DIPHENHYDRAMINE. [Concomitant]
     Active Substance: DIPHENHYDRAMINE
     Indication: PRODUCT USED FOR UNKNOWN INDICATION
     Dosage: UNK
     Route: 065
  51. IPRATROPIUM [Concomitant]
     Active Substance: IPRATROPIUM
     Indication: CHRONIC OBSTRUCTIVE PULMONARY DISEASE
     Dosage: UNK
     Route: 065
  52. DULOXETINE. [Interacting]
     Active Substance: DULOXETINE
     Indication: DEPRESSION
     Dosage: UNK
     Route: 065
  53. ACETYLSALICYLIC ACID [Suspect]
     Active Substance: ASPIRIN
     Indication: CORONARY ARTERY DISEASE
     Dosage: 100 MILLIGRAM, QD
     Route: 065
  54. FUROSEMIDE. [Concomitant]
     Active Substance: FUROSEMIDE
     Indication: PRODUCT USED FOR UNKNOWN INDICATION
     Dosage: UNK
     Route: 065

REACTIONS (16)
  - Hypercapnia [Unknown]
  - Acute myocardial infarction [Unknown]
  - Back pain [Unknown]
  - Chronic obstructive pulmonary disease [Unknown]
  - Clostridium difficile colitis [Unknown]
  - Acute respiratory failure [Unknown]
  - Lung disorder [Unknown]
  - Death [Fatal]
  - Off label use [Unknown]
  - Somnolence [Unknown]
  - Drug interaction [Unknown]
  - Erysipelas [Unknown]
  - Urinary tract infection [Unknown]
  - Arthralgia [Unknown]
  - Delirium [Unknown]
  - Pain [Unknown]

NARRATIVE: CASE EVENT DATE: 201510
